FAERS Safety Report 22387627 (Version 1)
Quarter: 2023Q2

REPORT INFORMATION
  Report Type: Spontaneous
  Country: JP (occurrence: None)
  Receive Date: 20230531
  Receipt Date: 20230531
  Transmission Date: 20230722
  Serious: Yes (Hospitalization)
  Sender: FDA-Public Use
  Company Number: 2023A124993

PATIENT
  Age: 21 Year
  Sex: Female

DRUGS (1)
  1. BISOPROLOL FUMARATE [Suspect]
     Active Substance: BISOPROLOL FUMARATE

REACTIONS (2)
  - Intentional overdose [Not Recovered/Not Resolved]
  - Loss of consciousness [Not Recovered/Not Resolved]
